FAERS Safety Report 25407931 (Version 1)
Quarter: 2025Q2

REPORT INFORMATION
  Report Type: Spontaneous
  Country: US (occurrence: US)
  Receive Date: 20250606
  Receipt Date: 20250606
  Transmission Date: 20250716
  Serious: No
  Sender: MYLAN
  Company Number: US-MYLANLABS-2025M1046372

PATIENT
  Sex: Male

DRUGS (4)
  1. LATANOPROST [Suspect]
     Active Substance: LATANOPROST
     Indication: Glaucoma
     Dosage: 50 MICROGRAM PER MILLILITER, BID (TWICE A DAY)
  2. LATANOPROST [Suspect]
     Active Substance: LATANOPROST
     Dosage: 50 MICROGRAM PER MILLILITER, BID (TWICE A DAY)
     Route: 047
  3. LATANOPROST [Suspect]
     Active Substance: LATANOPROST
     Dosage: 50 MICROGRAM PER MILLILITER, BID (TWICE A DAY)
     Route: 047
  4. LATANOPROST [Suspect]
     Active Substance: LATANOPROST
     Dosage: 50 MICROGRAM PER MILLILITER, BID (TWICE A DAY)

REACTIONS (2)
  - Off label use [Unknown]
  - Device delivery system issue [Unknown]
